FAERS Safety Report 10534990 (Version 1)
Quarter: 2014Q4

REPORT INFORMATION
  Report Type: Spontaneous
  Country: IT (occurrence: IT)
  Receive Date: 20141022
  Receipt Date: 20141022
  Transmission Date: 20150529
  Serious: Yes (Other)
  Sender: FDA-Public Use
  Company Number: IT-WATSON-2014-22291

PATIENT
  Age: 74 Year
  Sex: Male

DRUGS (7)
  1. LEVODOPA [Suspect]
     Active Substance: LEVODOPA
     Dosage: 600 MG, DAILY
     Route: 065
  2. RASAGILINE MESYLATE (UNKNOWN) [Suspect]
     Active Substance: RASAGILINE MESYLATE
     Indication: PARKINSON^S DISEASE
     Dosage: 1 MG, DAILY
     Route: 065
  3. PRAMIPEXOLE (UNKNOWN) [Suspect]
     Active Substance: PRAMIPEXOLE
     Indication: PARKINSON^S DISEASE
     Dosage: 0.7 MG FIVE TIMES A DAY
     Route: 065
  4. PRAMIPEXOLE (UNKNOWN) [Suspect]
     Active Substance: PRAMIPEXOLE
     Dosage: 0.7 MG, TID
     Route: 065
  5. LEVODOPA [Suspect]
     Active Substance: LEVODOPA
     Indication: PARKINSON^S DISEASE
     Dosage: UP TO 1400 MG/DAILY
     Route: 065
  6. AMANTADINE [Suspect]
     Active Substance: AMANTADINE
     Indication: PARKINSON^S DISEASE
     Dosage: 50 MG, DAILY
     Route: 065
  7. PRAMIPEXOLE (UNKNOWN) [Suspect]
     Active Substance: PRAMIPEXOLE
     Dosage: 2.1 MG, DAILY
     Route: 065

REACTIONS (5)
  - Dyskinesia [Unknown]
  - Overdose [Unknown]
  - Drug abuse [Unknown]
  - Mood swings [Unknown]
  - Dopamine dysregulation syndrome [Recovering/Resolving]
